FAERS Safety Report 11700570 (Version 1)
Quarter: 2015Q4

REPORT INFORMATION
  Report Type: Spontaneous
  Country: US (occurrence: None)
  Receive Date: 20151104
  Receipt Date: 20151104
  Transmission Date: 20160304
  Serious: Yes (Hospitalization)
  Sender: FDA-Public Use
  Company Number: None

PATIENT
  Age: 68 Year
  Sex: Female
  Weight: 70.31 kg

DRUGS (3)
  1. TORSEMIDE 10MG TABLET (APOTEX CORP) [Suspect]
     Active Substance: TORSEMIDE
     Indication: HYPERTENSION
     Dosage: 1 PILL ONCE DAILY
     Route: 048
     Dates: start: 20150724
  2. FUROSEMIDE 40 MG [Suspect]
     Active Substance: FUROSEMIDE
     Dosage: 1 PILL ONCE DAILY
     Route: 048
  3. LISINOPRIL. [Concomitant]
     Active Substance: LISINOPRIL

REACTIONS (3)
  - Peripheral swelling [None]
  - Erythema [None]
  - Pain in extremity [None]

NARRATIVE: CASE EVENT DATE: 20150724
